FAERS Safety Report 9183261 (Version 1)
Quarter: 2012Q4

REPORT INFORMATION
  Report Type: 
  Country: GB (occurrence: GB)
  Receive Date: 20121031
  Receipt Date: 20121031
  Transmission Date: 20130627
  Serious: Yes (Death)
  Sender: FDA-Public Use
  Company Number: GB-UCBSA-069305

PATIENT
  Age: 91 Year
  Sex: Female

DRUGS (1)
  1. NEUPRO [Suspect]
     Indication: PARKINSON^S DISEASE
     Route: 062
     Dates: start: 20121010, end: 20121013

REACTIONS (7)
  - Death [Fatal]
  - Pneumonia [Unknown]
  - Terminal state [Unknown]
  - Hallucination [Recovered/Resolved]
  - Agitation [Recovered/Resolved]
  - Dysphagia [Unknown]
  - Drug ineffective [Recovered/Resolved]
